FAERS Safety Report 23515447 (Version 2)
Quarter: 2024Q2

REPORT INFORMATION
  Report Type: Spontaneous
  Country: US (occurrence: US)
  Receive Date: 20240213
  Receipt Date: 20240517
  Transmission Date: 20240716
  Serious: Yes (Other)
  Sender: FDA-Public Use
  Company Number: US-JNJFOC-20240231430

PATIENT
  Sex: Male
  Weight: 113 kg

DRUGS (1)
  1. TECVAYLI [Suspect]
     Active Substance: TECLISTAMAB-CQYV
     Indication: Plasma cell myeloma
     Dosage: LINE 6?PRIMING DOSE 1 RECEIVED 2-JUL-2023
     Route: 058
     Dates: start: 20230702

REACTIONS (1)
  - Plasma cell myeloma [Unknown]
